FAERS Safety Report 8076348-9 (Version None)
Quarter: 2012Q1

REPORT INFORMATION
  Report Type: 
  Country: None (occurrence: None)
  Receive Date: 20120127
  Receipt Date: 20120119
  Transmission Date: 20120608
  Serious: Yes (Death, Other)
  Sender: FDA-Public Use
  Company Number: GB-ROCHE-1031762

PATIENT
  Age: 39 Year
  Sex: Male
  Weight: 76 kg

DRUGS (3)
  1. CAPECITABINE [Suspect]
     Indication: ADENOCARCINOMA
     Route: 048
     Dates: start: 20110809
  2. STEROID (NAME UNKNOWN) [Concomitant]
     Route: 065
  3. OXALIPLATIN [Suspect]
     Indication: ADENOCARCINOMA
     Route: 042
     Dates: start: 20110809

REACTIONS (4)
  - SYNCOPE [None]
  - ARRHYTHMIA [None]
  - FEELING ABNORMAL [None]
  - PALPITATIONS [None]
